FAERS Safety Report 4744834-2 (Version None)
Quarter: 2005Q3

REPORT INFORMATION
  Report Type: 
  Country: None (occurrence: None)
  Receive Date: 20050815
  Receipt Date: 20041203
  Transmission Date: 20060218
  Serious: Yes (Other)
  Sender: FDA-Public Use
  Company Number: GB-GLAXOSMITHKLINE-B0359471A

PATIENT
  Sex: Female

DRUGS (5)
  1. SEROXAT [Suspect]
     Route: 065
     Dates: start: 19990215
  2. LITHIUM [Suspect]
     Route: 048
  3. VALPROATE SODIUM [Concomitant]
     Route: 065
  4. CARBAMAZEPINE [Concomitant]
     Route: 065
  5. ZOPICLONE [Concomitant]
     Dosage: 3.75MG AT NIGHT
     Route: 065

REACTIONS (11)
  - ABORTION [None]
  - ANXIETY [None]
  - DRUG WITHDRAWAL SYNDROME [None]
  - EMOTIONAL DISORDER [None]
  - HYPOMANIA [None]
  - INSOMNIA [None]
  - INTENTIONAL MISUSE [None]
  - MOOD SWINGS [None]
  - PSYCHOMOTOR HYPERACTIVITY [None]
  - SUICIDAL IDEATION [None]
  - WEIGHT INCREASED [None]
